FAERS Safety Report 6085511-8 (Version None)
Quarter: 2009Q1

REPORT INFORMATION
  Report Type: 
  Country: None (occurrence: None)
  Receive Date: 20090217
  Receipt Date: 20080804
  Transmission Date: 20090719
  Serious: Yes (Other)
  Sender: FDA-Public Use
  Company Number: US-WYE-H05384208

PATIENT
  Age: 28 Year
  Sex: Female
  Weight: 77.18 kg

DRUGS (1)
  1. ALAVERT [Suspect]
     Indication: HYPERSENSITIVITY
     Dosage: 1 TABLET 1X PER 1 DAY, ORAL
     Route: 048
     Dates: start: 20080701, end: 20080701

REACTIONS (4)
  - DIZZINESS [None]
  - EUPHORIC MOOD [None]
  - PANIC ATTACK [None]
  - PARAESTHESIA [None]
